FAERS Safety Report 6043715-4 (Version None)
Quarter: 2009Q1

REPORT INFORMATION
  Report Type: 
  Country: None (occurrence: None)
  Receive Date: 20090120
  Receipt Date: 20090109
  Transmission Date: 20090719
  Serious: Yes (Other)
  Sender: FDA-Public Use
  Company Number: PHHY2008DE30476

PATIENT
  Sex: Female

DRUGS (3)
  1. ACLASTA [Suspect]
     Indication: OSTEOPOROSIS
     Dosage: 5 MG, UNK
     Route: 042
     Dates: start: 20081201, end: 20081201
  2. ENBREL [Suspect]
  3. PREDNISOLONE [Suspect]
     Dosage: 5 MG/DAY
     Route: 048

REACTIONS (2)
  - DERMATITIS BULLOUS [None]
  - PYREXIA [None]
